FAERS Safety Report 22312514 (Version 2)
Quarter: 2024Q2

REPORT INFORMATION
  Report Type: Spontaneous
  Country: US (occurrence: US)
  Receive Date: 20230512
  Receipt Date: 20240425
  Transmission Date: 20240716
  Serious: No
  Sender: FDA-Public Use
  Company Number: US-SUN PHARMACEUTICAL INDUSTRIES LTD-2023R1-382261

PATIENT
  Age: 67 Year
  Sex: Female

DRUGS (1)
  1. ILUMYA [Suspect]
     Active Substance: TILDRAKIZUMAB-ASMN
     Indication: Psoriasis
     Dosage: 100 MILLIGRAM, Q12 WKS
     Route: 058

REACTIONS (4)
  - Product dose omission issue [Unknown]
  - Product availability issue [Unknown]
  - Therapy partial responder [Unknown]
  - Treatment delayed [Unknown]

NARRATIVE: CASE EVENT DATE: 20231218
